FAERS Safety Report 23246153 (Version 1)
Quarter: 2023Q4

REPORT INFORMATION
  Report Type: Other
  Country: US (occurrence: None)
  Receive Date: 20231130
  Receipt Date: 20231130
  Transmission Date: 20240110
  Serious: No
  Sender: FDA-Public Use
  Company Number: US-ROCHE-3466969

PATIENT
  Age: 46 Year
  Sex: Female

DRUGS (1)
  1. OCREVUS [Suspect]
     Active Substance: OCRELIZUMAB
     Indication: Relapsing multiple sclerosis
     Dosage: PREVIOUS INFUSION WAS ON 27/DEC/2022, DATE OF TREATMENT WAS 20/JUL/2018, AND ANTICIPATED DATE OF TRE
     Route: 065

REACTIONS (1)
  - Tuberculosis [Unknown]
